FAERS Safety Report 12051108 (Version 1)
Quarter: 2016Q1

REPORT INFORMATION
  Report Type: Spontaneous
  Country: US (occurrence: None)
  Receive Date: 20160208
  Receipt Date: 20160208
  Transmission Date: 20160526
  Serious: No
  Sender: FDA-Public Use
  Company Number: None

PATIENT
  Age: 58 Year
  Sex: Female
  Weight: 154.22 kg

DRUGS (11)
  1. VITAMIST [Concomitant]
  2. MULTIPLE [Concomitant]
  3. IRON [Concomitant]
     Active Substance: IRON
  4. METOPROLOL TARTRATE. [Concomitant]
     Active Substance: METOPROLOL TARTRATE
  5. PRAMIPEXOLE. [Concomitant]
     Active Substance: PRAMIPEXOLE
  6. MELATONIN [Concomitant]
     Active Substance: MELATONIN
  7. BELVIQ [Suspect]
     Active Substance: LORCASERIN HYDROCHLORIDE
     Indication: WEIGHT DECREASED
  8. MELOXICAM. [Concomitant]
     Active Substance: MELOXICAM
  9. LOSARTAN/HCTZ [Concomitant]
     Active Substance: HYDROCHLOROTHIAZIDE\LOSARTAN
  10. BABY ASPIRIN [Concomitant]
     Active Substance: ASPIRIN
  11. VITAMIN B12 [Concomitant]
     Active Substance: CYANOCOBALAMIN

REACTIONS (4)
  - Chest pain [None]
  - Memory impairment [None]
  - Aphasia [None]
  - Feeling abnormal [None]

NARRATIVE: CASE EVENT DATE: 20150811
